FAERS Safety Report 10335712 (Version 1)
Quarter: 2014Q3

REPORT INFORMATION
  Report Type: Spontaneous
  Country: US (occurrence: US)
  Receive Date: 20140723
  Receipt Date: 20140723
  Transmission Date: 20150326
  Serious: No
  Sender: FDA-Public Use
  Company Number: US-BRISTOL-MYERS SQUIBB COMPANY-19043389

PATIENT
  Age: 89 Year
  Sex: Female
  Weight: 68.03 kg

DRUGS (7)
  1. NEXIUM [Concomitant]
     Active Substance: ESOMEPRAZOLE MAGNESIUM
  2. PLENDIL [Concomitant]
     Active Substance: FELODIPINE
  3. MICARDIS [Concomitant]
     Active Substance: TELMISARTAN
  4. ZOCOR [Concomitant]
     Active Substance: SIMVASTATIN
  5. COUMADIN [Suspect]
     Active Substance: WARFARIN SODIUM
     Indication: PULMONARY EMBOLISM
     Dates: start: 200206
  6. CALTRATE WITH VITAMIN D [Concomitant]
     Active Substance: CALCIUM CARBONATE\VITAMIN D
     Dosage: 1DF=CALTRATE WITH D 600 AND 400 UNITS NOS
  7. IMODIUM [Concomitant]
     Active Substance: LOPERAMIDE HYDROCHLORIDE

REACTIONS (3)
  - Alopecia [Unknown]
  - Fall [Unknown]
  - Contusion [Unknown]
